FAERS Safety Report 7462988-4 (Version None)
Quarter: 2011Q2

REPORT INFORMATION
  Report Type: 
  Country: None (occurrence: None)
  Receive Date: 20110506
  Receipt Date: 20110427
  Transmission Date: 20111010
  Serious: Yes (Other)
  Sender: FDA-Public Use
  Company Number: AU-JNJFOC-20110311348

PATIENT
  Age: 65 Year
  Sex: Male

DRUGS (13)
  1. ABACAVIR SULFATE AND LAMIVUDINE [Suspect]
     Indication: HIV INFECTION
     Route: 048
  2. TENOFOVIR DISOPROXIL FUMARATE [Suspect]
     Indication: HIV INFECTION
     Route: 065
  3. GASTRO GEL [Concomitant]
  4. INTELENCE [Suspect]
     Indication: HIV INFECTION
     Route: 048
  5. ISENTRESS [Suspect]
     Indication: HIV INFECTION
     Route: 048
  6. ACYCLOVIR [Concomitant]
  7. DARUNAVIR ETHANOLATE [Suspect]
     Indication: HIV INFECTION
     Route: 048
  8. BACTRIM [Concomitant]
  9. TRIZIVIR [Suspect]
     Indication: HIV INFECTION
     Route: 065
  10. FUZEON [Suspect]
     Indication: HIV INFECTION
     Route: 065
  11. VALTREX [Concomitant]
  12. IMODIUM [Concomitant]
  13. RITONAVIR [Suspect]
     Indication: HIV INFECTION
     Route: 048

REACTIONS (2)
  - BOWEN'S DISEASE [None]
  - SQUAMOUS CELL CARCINOMA [None]
